FAERS Safety Report 6260565-4 (Version None)
Quarter: 2009Q3

REPORT INFORMATION
  Report Type: 
  Country: None (occurrence: None)
  Receive Date: 20090708
  Receipt Date: 20090706
  Transmission Date: 20100115
  Serious: Yes (Life-Threatening)
  Sender: FDA-Public Use
  Company Number: JP-B.I. PHARMACEUTICALS,INC./RIDGEFIELD-2009-BP-08005NB

PATIENT
  Age: 8 Decade
  Sex: Male

DRUGS (5)
  1. MICARDIS [Suspect]
     Route: 048
     Dates: start: 20090101
  2. PLAVIX [Suspect]
     Route: 048
  3. ASPIRIN [Concomitant]
     Route: 048
  4. SIGMART [Concomitant]
     Route: 048
  5. ALL OTHER THERAPEUTIC PRODUCTS [Concomitant]
     Route: 048

REACTIONS (2)
  - HEPATIC FAILURE [None]
  - JAUNDICE [None]
